FAERS Safety Report 7602983-5 (Version None)
Quarter: 2011Q3

REPORT INFORMATION
  Report Type: 
  Country: None (occurrence: None)
  Receive Date: 20110712
  Receipt Date: 20110518
  Transmission Date: 20111222
  Serious: No
  Sender: FDA-Public Use
  Company Number: A0927827A

PATIENT
  Age: 81 Year
  Sex: Male

DRUGS (9)
  1. LANTUS [Concomitant]
  2. JALYN [Suspect]
     Dosage: 1CAP PER DAY
     Route: 048
     Dates: start: 20110501
  3. DIGOXIN [Concomitant]
  4. LISINOPRIL [Concomitant]
  5. COUMADIN [Concomitant]
  6. LIPITOR [Concomitant]
  7. HYDROCHLOROTHIAZIDE [Concomitant]
  8. ASPIRIN [Concomitant]
  9. NOVOLOG [Concomitant]

REACTIONS (2)
  - DISCOMFORT [None]
  - POLLAKIURIA [None]
